FAERS Safety Report 8914958 (Version 1)
Quarter: 2012Q4

REPORT INFORMATION
  Report Type: 
  Country: US (occurrence: US)
  Receive Date: 20121119
  Receipt Date: 20121119
  Transmission Date: 20130627
  Serious: No
  Sender: FDA-Public Use
  Company Number: US-009507513-1211USA003944

PATIENT
  Age: 14 Year
  Sex: Male
  Weight: 68.27 kg

DRUGS (1)
  1. CLARITIN-D 24 HOUR [Suspect]
     Indication: HYPERSENSITIVITY
     Dosage: 10 mg, qd
     Route: 048
     Dates: start: 20120911, end: 20120912

REACTIONS (2)
  - Overdose [Unknown]
  - Inappropriate schedule of drug administration [Unknown]
